FAERS Safety Report 9416937 (Version 2)
Quarter: 2013Q3

REPORT INFORMATION
  Report Type: Report from Study
  Country: US (occurrence: US)
  Receive Date: 20130724
  Receipt Date: 20130807
  Transmission Date: 20140515
  Serious: No
  Sender: FDA-Public Use
  Company Number: US-VERTEX PHARMACEUTICALS INC-2013-008195

PATIENT
  Age: 64 Year
  Sex: Female
  Weight: 72.83 kg

DRUGS (3)
  1. VX-950 (TELAPREVIR) [Suspect]
     Indication: HEPATITIS C
     Dosage: 375 MG, TID
     Route: 048
     Dates: start: 20130528
  2. PEGASYS [Suspect]
     Indication: HEPATITIS C
     Dosage: 180 ?G, QW
     Route: 058
     Dates: start: 20130528
  3. RIBAVIRIN [Suspect]
     Indication: HEPATITIS C
     Dosage: 600MG IN MORNING 400MG IN EVENING, QD
     Dates: start: 20130528

REACTIONS (1)
  - Fatigue [Recovered/Resolved]
